FAERS Safety Report 6575038-9 (Version None)
Quarter: 2010Q1

REPORT INFORMATION
  Report Type: 
  Country: None (occurrence: None)
  Receive Date: 20100209
  Receipt Date: 20100128
  Transmission Date: 20100710
  Serious: Yes (Other)
  Sender: FDA-Public Use
  Company Number: DE-AMGEN-UK352072

PATIENT
  Sex: Male
  Weight: 96 kg

DRUGS (1)
  1. NEUPOGEN [Suspect]
     Indication: BLOOD STEM CELL HARVEST
     Route: 058
     Dates: start: 20090430, end: 20090504

REACTIONS (4)
  - DEAFNESS UNILATERAL [None]
  - HEADACHE [None]
  - LEUKOCYTOSIS [None]
  - PAIN IN EXTREMITY [None]
